FAERS Safety Report 7024978-5 (Version None)
Quarter: 2010Q4

REPORT INFORMATION
  Report Type: 
  Country: None (occurrence: None)
  Receive Date: 20101001
  Receipt Date: 20100927
  Transmission Date: 20110411
  Serious: Yes (Hospitalization)
  Sender: FDA-Public Use
  Company Number: US-PFIZER INC-2010092225

PATIENT
  Sex: Female
  Weight: 72 kg

DRUGS (2)
  1. CHANTIX [Suspect]
     Indication: SMOKING CESSATION THERAPY
     Dosage: 0.5 MG, 1X/DAY
     Route: 048
     Dates: start: 20100714, end: 20100701
  2. CHANTIX [Suspect]
     Dosage: 1 MG, UNK
     Route: 048
     Dates: start: 20100701, end: 20100721

REACTIONS (7)
  - DYSPNOEA [None]
  - EPISTAXIS [None]
  - HAEMOPTYSIS [None]
  - HEADACHE [None]
  - MALAISE [None]
  - SKIN EXFOLIATION [None]
  - URTICARIA [None]
